FAERS Safety Report 8265708-9 (Version None)
Quarter: 2012Q2

REPORT INFORMATION
  Report Type: 
  Country: None (occurrence: None)
  Receive Date: 20120406
  Receipt Date: 20120305
  Transmission Date: 20120825
  Serious: Yes (Hospitalization, Other)
  Sender: FDA-Public Use
  Company Number: BR-ABBOTT-12P-020-0922237-00

PATIENT
  Sex: Female
  Weight: 72 kg

DRUGS (3)
  1. TRAMADOL HYDROCHLORIDE [Suspect]
     Route: 042
  2. TRAMADOL HYDROCHLORIDE [Suspect]
     Indication: PAIN
     Route: 048
     Dates: start: 20110305
  3. HUMIRA [Suspect]
     Indication: RHEUMATOID ARTHRITIS
     Route: 058
     Dates: start: 20110125

REACTIONS (9)
  - BACK PAIN [None]
  - JOINT WARMTH [None]
  - BACK DISORDER [None]
  - DRUG INEFFECTIVE [None]
  - PROCEDURAL PAIN [None]
  - ARTHRALGIA [None]
  - JOINT SWELLING [None]
  - SURGERY [None]
  - INFLAMMATION [None]
